FAERS Safety Report 7936708-0 (Version None)
Quarter: 2011Q4

REPORT INFORMATION
  Report Type: 
  Country: None (occurrence: None)
  Receive Date: 20111123
  Receipt Date: 20111114
  Transmission Date: 20120403
  Serious: Yes (Other)
  Sender: FDA-Public Use
  Company Number: US-GENZYME-CART-1000075

PATIENT

DRUGS (1)
  1. CARTICEL [Suspect]
     Indication: BONE LESION
     Dosage: UNK
     Dates: start: 20110523, end: 20110523

REACTIONS (4)
  - JOINT SWELLING [None]
  - ARTHRALGIA [None]
  - WRONG DEVICE USED [None]
  - GRAFT COMPLICATION [None]
